FAERS Safety Report 9129055 (Version 1)
Quarter: 2013Q1

REPORT INFORMATION
  Report Type: Spontaneous
  Country: US (occurrence: US)
  Receive Date: 20130228
  Receipt Date: 20130228
  Transmission Date: 20140127
  Serious: No
  Sender: FDA-Public Use
  Company Number: US-ABBOTT-12P-163-1018796-00

PATIENT
  Sex: Male
  Weight: 90.8 kg

DRUGS (4)
  1. ANDROGEL [Suspect]
     Indication: BLOOD TESTOSTERONE DECREASED
     Dosage: PUMP
     Route: 061
     Dates: start: 201202
  2. ANDROGEL [Suspect]
     Route: 061
  3. ANDROGEL [Suspect]
     Route: 061
  4. DHEA [Concomitant]
     Indication: SUPPLEMENTATION THERAPY

REACTIONS (3)
  - Rash [Recovering/Resolving]
  - Rash [Recovering/Resolving]
  - Rash [Not Recovered/Not Resolved]
